FAERS Safety Report 7919800-6 (Version None)
Quarter: 2011Q4

REPORT INFORMATION
  Report Type: 
  Country: None (occurrence: None)
  Receive Date: 20111117
  Receipt Date: 20111111
  Transmission Date: 20120403
  Serious: No
  Sender: FDA-Public Use
  Company Number: FR-JNJFOC-20110910239

PATIENT
  Age: 48 Year
  Sex: Male

DRUGS (2)
  1. REMICADE [Suspect]
     Indication: ANKYLOSING SPONDYLITIS
     Dosage: 7TH INFUSION.
     Route: 042
     Dates: start: 20110919
  2. REMICADE [Suspect]
     Route: 042

REACTIONS (6)
  - INFUSION RELATED REACTION [None]
  - DRUG INEFFECTIVE [None]
  - TREATMENT NONCOMPLIANCE [None]
  - ANTINUCLEAR ANTIBODY POSITIVE [None]
  - PYREXIA [None]
  - C-REACTIVE PROTEIN INCREASED [None]
